FAERS Safety Report 4431726-1 (Version None)
Quarter: 2004Q3

REPORT INFORMATION
  Report Type: 
  Country: None (occurrence: None)
  Receive Date: 20040820
  Receipt Date: 20040820
  Transmission Date: 20050211
  Serious: Yes (Hospitalization)
  Sender: FDA-Public Use
  Company Number: None

PATIENT
  Sex: Male
  Weight: 109.8 kg

DRUGS (14)
  1. RITUXIMAB -875 MG/M2 [Suspect]
     Indication: DIFFUSE LARGE B-CELL LYMPHOMA
     Dosage: 825 MG IV INFUSING ONLY
     Route: 042
     Dates: start: 20040816
  2. VINCRISTINE [Suspect]
     Dosage: 2 MG BID AM + PM
  3. CYTOXAN [Suspect]
     Dosage: 650 MG IV DAILY
     Route: 042
     Dates: start: 20040816
  4. DOXORUBICIAN (50 MG/M2) [Suspect]
     Dosage: IV  DOSE
     Route: 042
  5. PREDNISONE [Suspect]
     Dosage: ADM - PO DAYS 13
     Route: 048
  6. NEXIUM [Concomitant]
  7. HUMALOG [Concomitant]
  8. LANTUS [Concomitant]
  9. METFORMIN HCL [Concomitant]
  10. LISINOPRIL [Concomitant]
  11. GEMFIBROZIL [Concomitant]
  12. VITAMIN CAP [Concomitant]
  13. CALCIUM [Concomitant]
  14. ASPIRIN [Concomitant]

REACTIONS (1)
  - PYREXIA [None]
